FAERS Safety Report 10175154 (Version 2)
Quarter: 2014Q2

REPORT INFORMATION
  Report Type: Spontaneous
  Country: US (occurrence: US)
  Receive Date: 20140515
  Receipt Date: 20140630
  Transmission Date: 20141212
  Serious: Yes (Other)
  Sender: FDA-Public Use
  Company Number: US-PFIZER INC-2014129414

PATIENT
  Age: 31 Year
  Sex: Male

DRUGS (1)
  1. XYNTHA [Suspect]
     Dosage: 4000 IU 3 X WEAKLY (12 DOSES FOR A 30 DAY SUPPLY)
     Route: 042

REACTIONS (1)
  - Gastric haemorrhage [Unknown]
